FAERS Safety Report 14630007 (Version 1)
Quarter: 2018Q1

REPORT INFORMATION
  Report Type: Spontaneous
  Country: US (occurrence: US)
  Receive Date: 20180313
  Receipt Date: 20180313
  Transmission Date: 20180509
  Serious: No
  Sender: FDA-Public Use
  Company Number: US-PFIZER INC-2017165183

PATIENT
  Age: 69 Year
  Sex: Female
  Weight: 63.5 kg

DRUGS (14)
  1. IRON [Concomitant]
     Active Substance: IRON
     Indication: ANAEMIA
     Dosage: 130 MG, DAILY (65MG TWO TABLETS DAILY )
     Route: 048
  2. MAGNESIUM [Concomitant]
     Active Substance: MAGNESIUM
     Indication: CONSTIPATION
     Dosage: 250 MG, 1X/DAY
     Route: 048
  3. TYLENOL [Concomitant]
     Active Substance: ACETAMINOPHEN
     Indication: ARTHRITIS
     Dosage: 500 MG, AS NEEDED [500MG CAN TAKE AS MANY AS 6 PILLS PER DAY AS NEEDED BY MOUTH]
     Route: 048
  4. CITALOPRAM [Concomitant]
     Active Substance: CITALOPRAM HYDROBROMIDE
     Indication: DEPRESSION
     Dosage: UNK [20MG ONE HALF TABLET PER DAY BY MOUTH]
     Route: 048
  5. HYDROQUINONE. [Concomitant]
     Active Substance: HYDROQUINONE
     Indication: SKIN DISCOLOURATION
     Dosage: UNK, 1X/DAY, (APPLY TO SPOT AND RUB IN REAL GOOD)
     Route: 061
     Dates: start: 20180227
  6. XELJANZ XR [Suspect]
     Active Substance: TOFACITINIB CITRATE
     Indication: RHEUMATOID ARTHRITIS
     Dosage: 11 MG, 1X/DAY
     Route: 048
  7. OMEPRAZOLE. [Concomitant]
     Active Substance: OMEPRAZOLE
     Indication: GASTROOESOPHAGEAL REFLUX DISEASE
     Dosage: 40 MG, 1X/DAY
     Route: 048
  8. MELOXICAM. [Concomitant]
     Active Substance: MELOXICAM
     Indication: ARTHRITIS
     Dosage: 15 MG, UNK, (ONE AND A HALF TABLET A DAY)
     Route: 048
  9. PRENATAL VITAMIN [Concomitant]
     Active Substance: VITAMINS
     Indication: ANAEMIA
     Dosage: 1 DF, DAILY [ONE TABLET DAILY BY MOUTH]
     Route: 048
  10. TYLENOL [Concomitant]
     Active Substance: ACETAMINOPHEN
     Indication: PAIN
  11. BIOTIN [Concomitant]
     Active Substance: BIOTIN
     Indication: NAIL DISORDER
  12. BIOTIN [Concomitant]
     Active Substance: BIOTIN
     Indication: HAIR DISORDER
     Dosage: 1000 UG, ALTERNATE DAY [ONE CAPSULE EVERY OTHER DAY]
     Route: 048
  13. CLONAZEPAM. [Concomitant]
     Active Substance: CLONAZEPAM
     Indication: FEELING JITTERY
     Dosage: UNK [ONLY TAKES HALF A TABLET]
     Route: 048
  14. CALCIUM [Concomitant]
     Active Substance: CALCIUM
     Indication: BONE DISORDER
     Dosage: 1200 MG, 1X/DAY (2 TABLETS PER DAY FOR TOTAL OF 1200MG)
     Route: 048

REACTIONS (1)
  - Blood test abnormal [Unknown]

NARRATIVE: CASE EVENT DATE: 201802
